FAERS Safety Report 16646349 (Version 1)
Quarter: 2019Q3

REPORT INFORMATION
  Report Type: Spontaneous
  Country: DE (occurrence: DE)
  Receive Date: 20190730
  Receipt Date: 20190730
  Transmission Date: 20191004
  Serious: Yes (Hospitalization)
  Sender: FDA-Public Use
  Company Number: DE-HIKMA PHARMACEUTICALS USA INC.-DE-H14001-19-46317

PATIENT
  Age: 59 Year
  Sex: Male
  Weight: 81 kg

DRUGS (13)
  1. PIRITRAMIDE [Suspect]
     Active Substance: PIRITRAMIDE
     Indication: PRODUCT USED FOR UNKNOWN INDICATION
     Dosage: NK NK, INTRAOPERATIVE NARCOSIS, INJECTION / INFUSION SOLUTION ()
     Route: 042
  2. DESFLURANE. [Suspect]
     Active Substance: DESFLURANE
     Indication: PRODUCT USED FOR UNKNOWN INDICATION
     Dosage: NK NK, INTRAOPERATIVE NARCOSIS, INHALATION ANESTHETIC ()
     Route: 055
  3. LEVOFLOXACIN. [Suspect]
     Active Substance: LEVOFLOXACIN
     Indication: PRODUCT USED FOR UNKNOWN INDICATION
     Dosage: NK NK, NK, LAST ON 19/03/2018, TABLETS ()
     Route: 048
  4. AKRINOR [Suspect]
     Active Substance: CAFEDRINE HYDROCHLORIDE\THEODRENALINE
     Indication: PRODUCT USED FOR UNKNOWN INDICATION
     Dosage: NK NK, INTRAOPERATIVE NARCOSIS, INJECTION / INFUSION SOLUTION ()
     Route: 042
  5. METAMIZOLE [Concomitant]
     Active Substance: METAMIZOLE
     Indication: PRODUCT USED FOR UNKNOWN INDICATION
     Dosage: 500 MG, 1-1-1-1, IF NECESSARY, TABLETS ()
     Route: 048
  6. FENTANYL. [Suspect]
     Active Substance: FENTANYL
     Indication: PRODUCT USED FOR UNKNOWN INDICATION
     Dosage: NK NK, INTRAOPERATIVE NARCOSIS, INJECTION / INFUSION SOLUTION ()
     Route: 042
  7. CEFUROXIME. [Suspect]
     Active Substance: CEFUROXIME
     Indication: PRODUCT USED FOR UNKNOWN INDICATION
     Dosage: NK NK, SINGLE DOSE INTRAOPERATIVE, SOLUTION FOR INJECTION / INFUSION ()
     Route: 042
  8. PANTOPRAZOLE [Concomitant]
     Active Substance: PANTOPRAZOLE
     Indication: PRODUCT USED FOR UNKNOWN INDICATION
     Dosage: 40 MG, 1-0-0-0, TABLETS ()
     Route: 048
  9. METOPROLOL. [Concomitant]
     Active Substance: METOPROLOL
     Indication: PRODUCT USED FOR UNKNOWN INDICATION
     Dosage: 50 MG, 0.5-0-0-0, TABLETS ()
     Route: 048
  10. PROPOFOL. [Suspect]
     Active Substance: PROPOFOL
     Indication: PRODUCT USED FOR UNKNOWN INDICATION
     Dosage: NK NK, INTRAOPERATIVE NARKOSE, INJEKTIONS-/INFUSIONSL?SUNG ()
     Route: 042
  11. COAPROVEL [Concomitant]
     Active Substance: HYDROCHLOROTHIAZIDE\IRBESARTAN
     Indication: PRODUCT USED FOR UNKNOWN INDICATION
     Dosage: 150/12.5 MG, 1-0-0-0, TABLETS ()
     Route: 048
  12. APROVEL [Concomitant]
     Active Substance: IRBESARTAN
     Indication: PRODUCT USED FOR UNKNOWN INDICATION
     Dosage: 75 MG, 0-0-1-0, TABLETS ()
     Route: 048
  13. ENOXAPARIN [Concomitant]
     Active Substance: ENOXAPARIN
     Indication: PRODUCT USED FOR UNKNOWN INDICATION
     Dosage: 0.4 ML, 1X DAILY FOR 4 WEEKS, SOLUTION FOR INJECTION / INFUSION ()
     Route: 058

REACTIONS (2)
  - Liver function test abnormal [Unknown]
  - Systemic infection [Unknown]
